FAERS Safety Report 25037701 (Version 1)
Quarter: 2025Q1

REPORT INFORMATION
  Report Type: Spontaneous
  Country: HU (occurrence: HU)
  Receive Date: 20250304
  Receipt Date: 20250304
  Transmission Date: 20250409
  Serious: Yes (Other)
  Sender: MYLAN
  Company Number: HU-ROCHE-10000208456

PATIENT
  Age: 60 Year
  Sex: Female

DRUGS (28)
  1. AMLODIPINE [Suspect]
     Active Substance: AMLODIPINE BESYLATE
     Indication: Product used for unknown indication
  2. AMLODIPINE [Suspect]
     Active Substance: AMLODIPINE BESYLATE
     Route: 065
  3. AMLODIPINE [Suspect]
     Active Substance: AMLODIPINE BESYLATE
     Route: 065
  4. AMLODIPINE [Suspect]
     Active Substance: AMLODIPINE BESYLATE
  5. PHESGO [Suspect]
     Active Substance: HYALURONIDASE-ZZXF\PERTUZUMAB\TRASTUZUMAB
     Indication: Product used for unknown indication
  6. PHESGO [Suspect]
     Active Substance: HYALURONIDASE-ZZXF\PERTUZUMAB\TRASTUZUMAB
     Route: 065
  7. PHESGO [Suspect]
     Active Substance: HYALURONIDASE-ZZXF\PERTUZUMAB\TRASTUZUMAB
     Route: 065
  8. PHESGO [Suspect]
     Active Substance: HYALURONIDASE-ZZXF\PERTUZUMAB\TRASTUZUMAB
  9. HERCEPTIN [Suspect]
     Active Substance: TRASTUZUMAB
     Indication: Product used for unknown indication
  10. HERCEPTIN [Suspect]
     Active Substance: TRASTUZUMAB
     Route: 065
  11. HERCEPTIN [Suspect]
     Active Substance: TRASTUZUMAB
     Route: 065
  12. HERCEPTIN [Suspect]
     Active Substance: TRASTUZUMAB
  13. TAMOXIFEN [Suspect]
     Active Substance: TAMOXIFEN
     Indication: Product used for unknown indication
  14. TAMOXIFEN [Suspect]
     Active Substance: TAMOXIFEN
     Route: 065
  15. TAMOXIFEN [Suspect]
     Active Substance: TAMOXIFEN
     Route: 065
  16. TAMOXIFEN [Suspect]
     Active Substance: TAMOXIFEN
  17. LOSARTAN [Concomitant]
     Active Substance: LOSARTAN
  18. LOSARTAN [Concomitant]
     Active Substance: LOSARTAN
     Route: 065
  19. LOSARTAN [Concomitant]
     Active Substance: LOSARTAN
     Route: 065
  20. LOSARTAN [Concomitant]
     Active Substance: LOSARTAN
  21. BISOPROLOL [Concomitant]
     Active Substance: BISOPROLOL
     Dosage: 2.5 MILLIGRAM, QD
  22. BISOPROLOL [Concomitant]
     Active Substance: BISOPROLOL
     Dosage: 2.5 MILLIGRAM, QD
     Route: 065
  23. BISOPROLOL [Concomitant]
     Active Substance: BISOPROLOL
     Dosage: 2.5 MILLIGRAM, QD
     Route: 065
  24. BISOPROLOL [Concomitant]
     Active Substance: BISOPROLOL
     Dosage: 2.5 MILLIGRAM, QD
  25. RAMIPRIL [Concomitant]
     Active Substance: RAMIPRIL
  26. RAMIPRIL [Concomitant]
     Active Substance: RAMIPRIL
     Route: 065
  27. RAMIPRIL [Concomitant]
     Active Substance: RAMIPRIL
     Route: 065
  28. RAMIPRIL [Concomitant]
     Active Substance: RAMIPRIL

REACTIONS (4)
  - Anxiety [Unknown]
  - Blood pressure fluctuation [Unknown]
  - Joint swelling [Recovered/Resolved]
  - Dyspnoea [Unknown]
